FAERS Safety Report 9437778 (Version 1)
Quarter: 2013Q3

REPORT INFORMATION
  Report Type: Spontaneous
  Country: US (occurrence: None)
  Receive Date: 20130802
  Receipt Date: 20130802
  Transmission Date: 20140515
  Serious: No
  Sender: FDA-Public Use
  Company Number: None

PATIENT
  Sex: Female

DRUGS (1)
  1. TECFIDERA [Suspect]
     Indication: MULTIPLE SCLEROSIS
     Dosage: 120 MG X7DAYS TO 240 MG MAINTENANC
     Route: 048
     Dates: start: 20130719

REACTIONS (2)
  - Underdose [None]
  - Incorrect dose administered [None]
